FAERS Safety Report 5626971-3 (Version None)
Quarter: 2008Q1

REPORT INFORMATION
  Report Type: 
  Country: None (occurrence: None)
  Receive Date: 20080212
  Receipt Date: 20080129
  Transmission Date: 20080703
  Serious: Yes (Other)
  Sender: FDA-Public Use
  Company Number: 2008003159

PATIENT
  Age: 21 Year
  Sex: Male

DRUGS (4)
  1. PSEUDOEPHEDRINE HCL [Suspect]
     Indication: OVERDOSE
     Dosage: 8-12 TABLETS (480 -720 MG) (60 MG), ORAL
     Route: 048
     Dates: start: 20080128, end: 20080128
  2. IBUPROFEN [Suspect]
     Dosage: 3-4 TABLETS (800 MG), ORAL
     Route: 048
     Dates: start: 20080128, end: 20080128
  3. ANTIHISTAMINES (ANTIHISTAMINES) [Suspect]
     Dosage: 3-4 TABLETS, ORAL
     Route: 048
     Dates: start: 20080128, end: 20080128
  4. ALCOHOL (ALCOHOL) [Suspect]
     Dosage: 1 L, ORAL
     Route: 048
     Dates: start: 20080128, end: 20080128

REACTIONS (8)
  - ACCIDENT [None]
  - ALCOHOL USE [None]
  - DEHYDRATION [None]
  - DEPRESSION [None]
  - MULTIPLE DRUG OVERDOSE [None]
  - REFUSAL OF TREATMENT BY PATIENT [None]
  - SUICIDAL IDEATION [None]
  - TACHYCARDIA [None]
